FAERS Safety Report 5234224-0 (Version None)
Quarter: 2007Q1

REPORT INFORMATION
  Report Type: 
  Country: None (occurrence: None)
  Receive Date: 20070207
  Receipt Date: 20061204
  Transmission Date: 20070707
  Serious: Yes (Hospitalization)
  Sender: FDA-Public Use
  Company Number: DSA_80055_2003

PATIENT
  Age: 46 Year
  Sex: Female

DRUGS (4)
  1. XYREM [Suspect]
     Indication: CATAPLEXY
     Dosage: 4.5 (2.25, 2 IN 1 D), ORAL
     Route: 048
     Dates: start: 20030129, end: 20030130
  2. TOFRANIL [Concomitant]
  3. CYLERT [Concomitant]
  4. CAFERGOT [Concomitant]

REACTIONS (11)
  - AGITATION [None]
  - BURNING SENSATION [None]
  - CEREBRAL ATROPHY [None]
  - CHEST DISCOMFORT [None]
  - DIZZINESS [None]
  - DYSPNOEA [None]
  - FEELING ABNORMAL [None]
  - HAEMANGIOMA [None]
  - INCOHERENT [None]
  - NAUSEA [None]
  - NUCLEAR MAGNETIC RESONANCE IMAGING BRAIN ABNORMAL [None]
